FAERS Safety Report 7148266-1 (Version None)
Quarter: 2010Q4

REPORT INFORMATION
  Report Type: 
  Country: None (occurrence: None)
  Receive Date: 20101209
  Receipt Date: 20101207
  Transmission Date: 20110411
  Serious: Yes (Death, Hospitalization)
  Sender: FDA-Public Use
  Company Number: PHHY2010TW49153

PATIENT
  Sex: Male

DRUGS (2)
  1. EXJADE [Suspect]
     Indication: APLASTIC ANAEMIA
     Dosage: 1000 MG, UNK
     Route: 048
     Dates: start: 20100710
  2. EXJADE [Suspect]
     Dosage: 1250 MG, UNK
     Route: 048

REACTIONS (4)
  - DEATH [None]
  - FACE OEDEMA [None]
  - GASTRIC ULCER [None]
  - RASH [None]
